FAERS Safety Report 7483406-6 (Version None)
Quarter: 2011Q2

REPORT INFORMATION
  Report Type: 
  Country: None (occurrence: None)
  Receive Date: 20110509
  Receipt Date: 20110425
  Transmission Date: 20111010
  Serious: Yes (Death)
  Sender: FDA-Public Use
  Company Number: 2011P1006151

PATIENT
  Age: 22 Year
  Sex: Male
  Weight: 102.0593 kg

DRUGS (4)
  1. MIDAZOLAM HCL [Suspect]
     Indication: HOMICIDE
     Dosage: IM
     Route: 030
  2. MIDAZOLAM HCL [Suspect]
     Indication: HOMICIDE
     Dosage: IV
     Route: 042
  3. FENTANYL [Suspect]
     Dosage: IM
     Route: 030
  4. FENTANYL [Suspect]
     Indication: HOMICIDE
     Dosage: IV
     Route: 042

REACTIONS (4)
  - RESPIRATORY ARREST [None]
  - DRUG LEVEL INCREASED [None]
  - VICTIM OF HOMICIDE [None]
  - INTENTIONAL DRUG MISUSE [None]
